FAERS Safety Report 16047527 (Version 1)
Quarter: 2019Q1

REPORT INFORMATION
  Report Type: Spontaneous
  Country: CM (occurrence: CM)
  Receive Date: 20190307
  Receipt Date: 20190307
  Transmission Date: 20190418
  Serious: Yes (Other)
  Sender: FDA-Public Use
  Company Number: CM-CASPER PHARMA LLC-2019CAS000074

PATIENT
  Age: 21 Year
  Sex: Male

DRUGS (1)
  1. PENICILLIN G BENZATHINE [Suspect]
     Active Substance: PENICILLIN G BENZATHINE
     Indication: SEXUALLY TRANSMITTED DISEASE
     Dosage: UNK
     Route: 030

REACTIONS (2)
  - Embolia cutis medicamentosa [Recovering/Resolving]
  - Product use in unapproved indication [Unknown]
